FAERS Safety Report 7804136-4 (Version None)
Quarter: 2011Q4

REPORT INFORMATION
  Report Type: 
  Country: None (occurrence: None)
  Receive Date: 20111010
  Receipt Date: 20111006
  Transmission Date: 20120403
  Serious: Yes (Hospitalization, Other)
  Sender: FDA-Public Use
  Company Number: US-PFIZER INC-2011054349

PATIENT
  Sex: Male

DRUGS (6)
  1. WELLBUTRIN [Concomitant]
     Indication: SMOKING CESSATION THERAPY
     Dosage: UNK
     Dates: start: 20060101, end: 20090101
  2. CHANTIX [Suspect]
     Indication: SMOKING CESSATION THERAPY
     Dosage: STARTER PACK AND MONTHLY REFILLS
     Dates: start: 20081210, end: 20090310
  3. ACCURETIC [Concomitant]
     Indication: BLOOD PRESSURE
     Dosage: UNK
     Dates: start: 20040101
  4. ALBUTEROL [Concomitant]
     Indication: PNEUMOTHORAX
     Dosage: UNK
     Dates: start: 20050101
  5. WARFARIN [Concomitant]
     Indication: DEEP VEIN THROMBOSIS
     Dosage: UNK
     Dates: start: 20040101
  6. ALBUTEROL [Concomitant]
     Indication: THROMBOSIS

REACTIONS (7)
  - MOOD SWINGS [None]
  - INJURY [None]
  - DEPRESSION [None]
  - SUICIDE ATTEMPT [None]
  - SUICIDAL IDEATION [None]
  - INTENTIONAL OVERDOSE [None]
  - ANGER [None]
